FAERS Safety Report 17166357 (Version 4)
Quarter: 2020Q2

REPORT INFORMATION
  Report Type: Report from Study
  Country: US (occurrence: US)
  Receive Date: 20191217
  Receipt Date: 20200414
  Transmission Date: 20200713
  Serious: Yes (Hospitalization)
  Sender: FDA-Public Use
  Company Number: US-ACTELION-A-NJ2019-199366

PATIENT
  Sex: Male
  Weight: 74.83 kg

DRUGS (2)
  1. OPSUMIT [Suspect]
     Active Substance: MACITENTAN
     Indication: PULMONARY ARTERIAL HYPERTENSION
     Dosage: 10 MG, QD
     Route: 048
  2. ORENITRAM [Concomitant]
     Active Substance: TREPROSTINIL

REACTIONS (6)
  - Weight fluctuation [Unknown]
  - Gastrointestinal haemorrhage [Unknown]
  - Infection [Unknown]
  - Weight abnormal [Unknown]
  - Dyspnoea [Unknown]
  - Haemoglobin decreased [Unknown]
